FAERS Safety Report 4874093-1 (Version None)
Quarter: 2006Q1

REPORT INFORMATION
  Report Type: 
  Country: None (occurrence: None)
  Receive Date: 20060104
  Receipt Date: 20051216
  Transmission Date: 20060701
  Serious: Yes (Death, Life-Threatening)
  Sender: FDA-Public Use
  Company Number: 200510IM000635

PATIENT
  Age: 51 Year
  Sex: Male
  Weight: 78.9 kg

DRUGS (9)
  1. INTERFERON ALFACON-1 [Suspect]
     Indication: HEPATITIS C
     Dosage: 15 UG, QD, SUBCUTANEOUS
     Route: 058
     Dates: start: 20050613
  2. RIBAVIRIN [Suspect]
     Indication: HEPATITIS C
     Dosage: 600 MG, BID, ORAL
     Route: 048
     Dates: start: 20050613
  3. ACETAMINOPHEN [Concomitant]
  4. LOPRESSOR [Concomitant]
  5. PRILOSEC [Concomitant]
  6. ASPIRIN [Concomitant]
  7. XANAX [Concomitant]
  8. IMODIUM [Concomitant]
  9. ZOLOFT [Concomitant]

REACTIONS (6)
  - ABDOMINAL PAIN UPPER [None]
  - HAEMANGIOMA OF LIVER [None]
  - HEPATIC NEOPLASM MALIGNANT [None]
  - PERICARDIAL EFFUSION [None]
  - PULMONARY EMBOLISM [None]
  - RESPIRATORY FAILURE [None]
